FAERS Safety Report 4831897-9 (Version None)
Quarter: 2005Q4

REPORT INFORMATION
  Report Type: 
  Country: None (occurrence: None)
  Receive Date: 20051116
  Receipt Date: 20051103
  Transmission Date: 20060501
  Serious: Yes (Death, Hospitalization, Congenital Anomaly)
  Sender: FDA-Public Use
  Company Number: 2005RR-01063

PATIENT
  Age: 33 Week
  Sex: Female
  Weight: 2.9 kg

DRUGS (3)
  1. GLICLAZIDE (GLICLAZIDE) [Suspect]
     Indication: DIABETES MELLITUS NON-INSULIN-DEPENDENT
     Dosage: TRANSPLACENTAL
     Route: 064
     Dates: end: 20041102
  2. ATORVASTATIN (ATORVASTTIN) [Suspect]
     Indication: DIABETES MELLITUS NON-INSULIN-DEPENDENT
     Dosage: TRANSPLACENTAL
     Route: 064
     Dates: end: 20041102
  3. METFORMIN HCL [Suspect]
     Indication: DIABETES MELLITUS NON-INSULIN-DEPENDENT
     Dosage: TRANSPLACENTAL
     Route: 064
     Dates: end: 20041102

REACTIONS (4)
  - CONGENITAL HEPATOMEGALY [None]
  - DRUG EXPOSURE DURING PREGNANCY [None]
  - SINGLE FUNCTIONAL KIDNEY [None]
  - STILLBIRTH [None]
